FAERS Safety Report 10257503 (Version 1)
Quarter: 2014Q2

REPORT INFORMATION
  Report Type: Spontaneous
  Country: US (occurrence: None)
  Receive Date: 20140623
  Receipt Date: 20140623
  Transmission Date: 20141212
  Serious: No
  Sender: FDA-Public Use
  Company Number: None

PATIENT
  Age: 33 Year
  Sex: Female

DRUGS (1)
  1. PARAGARD IUD SUPPOSED TO BE HORMONE FREE PARAGARD [Suspect]
     Indication: CONTRACEPTION

REACTIONS (1)
  - Device breakage [None]
